FAERS Safety Report 5348022-0 (Version None)
Quarter: 2007Q2

REPORT INFORMATION
  Report Type: 
  Country: None (occurrence: None)
  Receive Date: 20070606
  Receipt Date: 20070601
  Transmission Date: 20071010
  Serious: Yes (Other)
  Sender: FDA-Public Use
  Company Number: US-ASTRAZENECA-2007UW13419

PATIENT
  Age: 64 Year
  Sex: Female

DRUGS (7)
  1. NEXIUM [Suspect]
     Indication: ULCER
     Route: 048
     Dates: start: 20070601
  2. PREDNISONE TAB [Concomitant]
  3. AVALIDE [Concomitant]
  4. SINGULAIR [Concomitant]
  5. ZETIA [Concomitant]
  6. LEXAPRO [Concomitant]
  7. CEFUROXIME [Concomitant]

REACTIONS (2)
  - DELIRIUM [None]
  - MEMORY IMPAIRMENT [None]
